FAERS Safety Report 12785325 (Version 1)
Quarter: 2016Q3

REPORT INFORMATION
  Report Type: Spontaneous
  Country: US (occurrence: US)
  Receive Date: 20160927
  Receipt Date: 20160927
  Transmission Date: 20161109
  Serious: No
  Sender: FDA-Public Use
  Company Number: US-FRI-1000082151

PATIENT
  Sex: Female

DRUGS (2)
  1. TROSPIUM [Interacting]
     Active Substance: TROSPIUM
     Dosage: UNK
  2. LINZESS [Suspect]
     Active Substance: LINACLOTIDE
     Dosage: UNK

REACTIONS (3)
  - Anal incontinence [Unknown]
  - Muscle spasms [Unknown]
  - Drug interaction [Unknown]
